APPROVED DRUG PRODUCT: ULTRAM ER
Active Ingredient: TRAMADOL HYDROCHLORIDE
Strength: 100MG **Federal Register determination that product was not discontinued or withdrawn for safety or effectiveness reasons**
Dosage Form/Route: TABLET, EXTENDED RELEASE;ORAL
Application: N021692 | Product #001
Applicant: VALEANT PHARMACEUTICALS NORTH AMERICA LLC
Approved: Sep 8, 2005 | RLD: Yes | RS: No | Type: DISCN